FAERS Safety Report 14394361 (Version 1)
Quarter: 2018Q1

REPORT INFORMATION
  Report Type: Spontaneous
  Country: US (occurrence: US)
  Receive Date: 20180116
  Receipt Date: 20180116
  Transmission Date: 20180509
  Serious: No
  Sender: FDA-Public Use
  Company Number: US-REGENERON PHARMACEUTICALS, INC.-2017-20856

PATIENT

DRUGS (3)
  1. EYLEA [Suspect]
     Active Substance: AFLIBERCEPT
     Dosage: 0.5ML, LEFT EYE, EVERY 2 MONTHS
     Route: 031
     Dates: start: 20170816, end: 20170816
  2. EYLEA [Suspect]
     Active Substance: AFLIBERCEPT
     Dosage: 0.5ML, LEFT EYE, EVERY 2 MONTHS
     Route: 031
     Dates: start: 20171018, end: 20171018
  3. EYLEA [Suspect]
     Active Substance: AFLIBERCEPT
     Indication: NEOVASCULAR AGE-RELATED MACULAR DEGENERATION
     Dosage: 0.5ML, LEFT EYE, EVERY 2 MONTHS
     Route: 031
     Dates: start: 20140820, end: 20171018

REACTIONS (4)
  - Eye disorder [Recovered/Resolved]
  - Conjunctival scar [Recovered/Resolved]
  - Drug dose omission [Recovered/Resolved]
  - Needle issue [Recovered/Resolved]

NARRATIVE: CASE EVENT DATE: 20170816
